FAERS Safety Report 21132051 (Version 1)
Quarter: 2022Q3

REPORT INFORMATION
  Report Type: Report from Study
  Country: US (occurrence: US)
  Receive Date: 20220726
  Receipt Date: 20220726
  Transmission Date: 20221027
  Serious: Yes (Death)
  Sender: FDA-Public Use
  Company Number: US-ABBVIE-22K-163-4481653-00

PATIENT
  Age: 0 Year
  Sex: Male

DRUGS (4)
  1. KALETRA [Suspect]
     Active Substance: LOPINAVIR\RITONAVIR
     Indication: Maternal exposure timing unspecified
     Dosage: 637595 - MANUFACTURER CONTROL NUMBER
     Route: 064
  2. LAMIVUDINE [Concomitant]
     Active Substance: LAMIVUDINE
     Indication: Maternal exposure timing unspecified
     Dosage: 4
  3. ABACAVIR [Concomitant]
     Active Substance: ABACAVIR
     Indication: Maternal exposure timing unspecified
     Dosage: 1
  4. TENOFOVIR DISOPROXIL FUMARATE [Concomitant]
     Active Substance: TENOFOVIR DISOPROXIL FUMARATE
     Indication: Maternal exposure timing unspecified
     Dosage: 19

REACTIONS (2)
  - Premature baby [Fatal]
  - Premature baby death [Fatal]

NARRATIVE: CASE EVENT DATE: 20091105
